FAERS Safety Report 19990871 (Version 1)
Quarter: 2021Q4

REPORT INFORMATION
  Report Type: Spontaneous
  Country: US (occurrence: US)
  Receive Date: 20211025
  Receipt Date: 20211025
  Transmission Date: 20220303
  Serious: Yes (Hospitalization)
  Sender: FDA-Public Use
  Company Number: None

PATIENT
  Age: 53 Year
  Sex: Female
  Weight: 83.25 kg

DRUGS (2)
  1. CASIRIVIMAB\IMDEVIMAB [Suspect]
     Active Substance: CASIRIVIMAB\IMDEVIMAB
     Indication: COVID-19
     Dosage: ?          OTHER FREQUENCY:ONCE;
     Route: 043
  2. Regen 1200mg [Concomitant]
     Dates: start: 20211020, end: 20211020

REACTIONS (3)
  - Hypoglycaemia [None]
  - Hyponatraemia [None]
  - Infusion related reaction [None]

NARRATIVE: CASE EVENT DATE: 20211021
